FAERS Safety Report 10018391 (Version 1)
Quarter: 2014Q1

REPORT INFORMATION
  Report Type: Spontaneous
  Country: US (occurrence: US)
  Receive Date: 20140318
  Receipt Date: 20140318
  Transmission Date: 20141002
  Serious: No
  Sender: FDA-Public Use
  Company Number: US-BAYER-2014-029693

PATIENT
  Age: 33 Year
  Sex: Female

DRUGS (7)
  1. NIMODIPINE [Suspect]
     Indication: HYPERTENSION
     Dosage: 60 MG, Q4HR
     Route: 048
  2. NIMODIPINE [Suspect]
     Indication: CEREBRAL VASOCONSTRICTION
  3. IBUPROFEN [Suspect]
     Indication: HEADACHE
  4. FLUOXETINE [Concomitant]
     Indication: OBSESSIVE-COMPULSIVE DISORDER
     Dosage: DAILY DOSE 40 MG
  5. ACETAMINOPHEN [Concomitant]
     Indication: HEADACHE
  6. OXYCODONE [Concomitant]
     Indication: HEADACHE
  7. LABETALOL [Concomitant]
     Indication: HYPERTENSION
     Dosage: 10 MG, PRN
     Route: 042

REACTIONS (2)
  - Hypersensitivity [None]
  - Drug ineffective [None]
